FAERS Safety Report 9639836 (Version 1)
Quarter: 2013Q4

REPORT INFORMATION
  Report Type: Spontaneous
  Country: US (occurrence: None)
  Receive Date: 20131021
  Receipt Date: 20131021
  Transmission Date: 20140711
  Serious: No
  Sender: FDA-Public Use
  Company Number: None

PATIENT
  Age: 61 Year
  Sex: Female
  Weight: 81.65 kg

DRUGS (2)
  1. ADVAIR [Suspect]
     Indication: CHRONIC OBSTRUCTIVE PULMONARY DISEASE
     Dosage: 1 PUFF, TWICE DAILY, TAKEN BY  MOUTH
     Route: 048
     Dates: start: 20131009, end: 20131016
  2. ADVAIR [Suspect]
     Indication: WHEEZING
     Dosage: 1 PUFF, TWICE DAILY, TAKEN BY  MOUTH
     Route: 048
     Dates: start: 20131009, end: 20131016

REACTIONS (2)
  - Oropharyngeal pain [None]
  - Cough [None]
